FAERS Safety Report 6377073-2 (Version None)
Quarter: 2009Q3

REPORT INFORMATION
  Report Type: 
  Country: None (occurrence: None)
  Receive Date: 20090925
  Receipt Date: 20090914
  Transmission Date: 20100115
  Serious: Yes (Other)
  Sender: FDA-Public Use
  Company Number: NL-PFIZER INC-2009254421

PATIENT
  Age: 49 Year

DRUGS (1)
  1. CHAMPIX [Suspect]
     Indication: SMOKING CESSATION THERAPY
     Dosage: 1 MG, 2X/DAY
     Route: 048
     Dates: start: 20090701

REACTIONS (9)
  - ABNORMAL DREAMS [None]
  - COORDINATION ABNORMAL [None]
  - DEPRESSED MOOD [None]
  - DISCOMFORT [None]
  - DISTURBANCE IN ATTENTION [None]
  - HYPOTENSION [None]
  - INSOMNIA [None]
  - PSYCHIATRIC SYMPTOM [None]
  - VISUAL IMPAIRMENT [None]
